FAERS Safety Report 8383478-0 (Version None)
Quarter: 2012Q1

REPORT INFORMATION
  Report Type: 
  Country: None (occurrence: None)
  Receive Date: 20120323
  Receipt Date: 20110408
  Transmission Date: 20120608
  Serious: Yes (Hospitalization)
  Sender: FDA-Public Use
  Company Number: 163-21880-11032520

PATIENT
  Age: 79 Year
  Sex: Female

DRUGS (8)
  1. GABAPENTIN [Concomitant]
  2. ASPIRIN [Concomitant]
  3. VALTREX (VALACCLOVIR HYDROCHLORIDE) [Concomitant]
  4. NIFEDIPINE [Concomitant]
  5. REVLIMID [Suspect]
     Indication: MULTIPLE MYELOMA
     Dosage: 25 MG, QD X 21 DAYS, PO 15 MG, QD X 21 DAYS, PO
     Route: 048
     Dates: start: 20110318
  6. REVLIMID [Suspect]
     Indication: MULTIPLE MYELOMA
     Dosage: 25 MG, QD X 21 DAYS, PO 15 MG, QD X 21 DAYS, PO
     Route: 048
     Dates: start: 20100806, end: 20110114
  7. METFORMIN HCL [Concomitant]
  8. SIMVASTATIN [Concomitant]

REACTIONS (1)
  - DEEP VEIN THROMBOSIS [None]
